FAERS Safety Report 25521545 (Version 2)
Quarter: 2025Q3

REPORT INFORMATION
  Report Type: Spontaneous
  Country: EU (occurrence: EU)
  Receive Date: 20250706
  Receipt Date: 20250806
  Transmission Date: 20251021
  Serious: Yes (Death, Other)
  Sender: AUROBINDO
  Company Number: EU-SAMSUNG BIOEPIS-SB-2025-21134

PATIENT
  Age: 42 Year
  Sex: Male

DRUGS (8)
  1. CARBOPLATIN [Suspect]
     Active Substance: CARBOPLATIN
     Indication: Adenocarcinoma of salivary gland
     Route: 065
     Dates: start: 202306
  2. CAPECITABINE [Suspect]
     Active Substance: CAPECITABINE
     Indication: Adenocarcinoma of salivary gland
     Route: 065
     Dates: start: 202301
  3. PACLITAXEL [Suspect]
     Active Substance: PACLITAXEL
     Indication: Adenocarcinoma of salivary gland
     Route: 065
     Dates: start: 202006
  4. PERTUZUMAB [Suspect]
     Active Substance: PERTUZUMAB
     Indication: Adenocarcinoma of salivary gland
     Route: 065
     Dates: start: 202304
  5. TRASTUZUMAB [Suspect]
     Active Substance: TRASTUZUMAB
     Indication: Adenocarcinoma of salivary gland
     Route: 065
     Dates: start: 202006
  6. TRASTUZUMAB [Suspect]
     Active Substance: TRASTUZUMAB
     Route: 065
     Dates: start: 20211104
  7. TUCATINIB [Suspect]
     Active Substance: TUCATINIB
     Indication: Adenocarcinoma of salivary gland
     Route: 065
     Dates: start: 202301
  8. FAM-TRASTUZUMAB DERUXTECAN-NXKI [Suspect]
     Active Substance: FAM-TRASTUZUMAB DERUXTECAN-NXKI
     Indication: Adenocarcinoma of salivary gland
     Route: 065
     Dates: start: 20210411

REACTIONS (3)
  - Malignant neoplasm progression [Fatal]
  - Drug ineffective for unapproved indication [Unknown]
  - Off label use [Unknown]
